FAERS Safety Report 4838492-6 (Version None)
Quarter: 2005Q4

REPORT INFORMATION
  Report Type: 
  Country: None (occurrence: None)
  Receive Date: 20051123
  Receipt Date: 20051108
  Transmission Date: 20060501
  Serious: Yes (Death, Hospitalization)
  Sender: FDA-Public Use
  Company Number: 2004

PATIENT
  Age: 45 Year
  Sex: Male

DRUGS (8)
  1. ONTAK [Suspect]
     Indication: FOLLICLE CENTRE LYMPHOMA, FOLLICULAR GRADE I, II, III
     Dosage: 18 UG/KG/D ONCE IV
     Route: 042
     Dates: start: 20030801, end: 20031109
  2. DEXAMETHASONE [Concomitant]
  3. HYDROMORPHONE HYDROCHLORIDE [Concomitant]
  4. HYDROXYZINE HYDROCHLORIDE [Concomitant]
  5. PANTOPRAZOLE [Concomitant]
  6. PIPERACILLIN SODIUM/TAZOBACTAM SODIUM [Concomitant]
  7. SILVER SULFADIAZINE [Concomitant]
  8. ZOLPIDEM TARTRATE [Concomitant]

REACTIONS (9)
  - ERYTHEMA MULTIFORME [None]
  - GRAFT VERSUS HOST DISEASE [None]
  - MULTI-ORGAN FAILURE [None]
  - OEDEMA [None]
  - PURPURA [None]
  - RASH PRURITIC [None]
  - STAPHYLOCOCCAL INFECTION [None]
  - THROMBOCYTOPENIA [None]
  - TOXIC EPIDERMAL NECROLYSIS [None]
